FAERS Safety Report 6746918-6 (Version None)
Quarter: 2010Q2

REPORT INFORMATION
  Report Type: 
  Country: None (occurrence: None)
  Receive Date: 20100526
  Receipt Date: 20100518
  Transmission Date: 20101027
  Serious: Yes (Other)
  Sender: FDA-Public Use
  Company Number: 2010JP002773

PATIENT
  Age: 52 Year
  Sex: Male
  Weight: 60 kg

DRUGS (5)
  1. FUNGUARD (MICAFUNGIN) INJECTION [Suspect]
     Indication: PNEUMONIA
     Dosage: 300 MG, UID/QD, IV DRIP
     Route: 042
     Dates: start: 20100428, end: 20100428
  2. IDAMYCIN [Concomitant]
  3. CYTARABINE [Concomitant]
  4. MAXIPIME [Concomitant]
  5. GENTACIN (GENTAMICIN SULFATE) INJECTION [Concomitant]

REACTIONS (1)
  - HAEMOLYTIC ANAEMIA [None]
